FAERS Safety Report 7748923-X (Version None)
Quarter: 2011Q3

REPORT INFORMATION
  Report Type: 
  Country: None (occurrence: None)
  Receive Date: 20110914
  Receipt Date: 20110131
  Transmission Date: 20111222
  Serious: No
  Sender: FDA-Public Use
  Company Number: US-BAYER-2011-010586

PATIENT
  Age: 32 Year
  Sex: Female

DRUGS (2)
  1. MIRENA [Suspect]
     Indication: CONTRACEPTION
     Dosage: 20 MCG/24HR, CONT
     Route: 015
     Dates: start: 20100506, end: 20101001
  2. MIRENA [Suspect]
     Indication: MENORRHAGIA

REACTIONS (5)
  - ANXIETY [None]
  - LIBIDO DECREASED [None]
  - PAIN [None]
  - FEELING ABNORMAL [None]
  - MOOD SWINGS [None]
